FAERS Safety Report 4560056-2 (Version None)
Quarter: 2005Q1

REPORT INFORMATION
  Report Type: 
  Country: None (occurrence: None)
  Receive Date: 20050125
  Receipt Date: 20050113
  Transmission Date: 20050727
  Serious: Yes (Death)
  Sender: FDA-Public Use
  Company Number: US-JNJFOC-20050103954

PATIENT
  Sex: Male

DRUGS (6)
  1. INFLIXIMAB [Suspect]
     Indication: RHEUMATOID ARTHRITIS
     Route: 042
  2. PREDNISONE [Concomitant]
  3. COUMADIN [Concomitant]
  4. METHOTREXATE [Concomitant]
  5. IRON [Concomitant]
  6. FOLIC ACID [Concomitant]

REACTIONS (1)
  - NEOPLASM MALIGNANT [None]
